FAERS Safety Report 15141964 (Version 5)
Quarter: 2024Q3

REPORT INFORMATION
  Report Type: Report from Study
  Country: BE (occurrence: BE)
  Receive Date: 20180713
  Receipt Date: 20240923
  Transmission Date: 20241017
  Serious: Yes (Death, Hospitalization, Other)
  Sender: PFIZER
  Company Number: BE-ROCHE-2083268

PATIENT
  Age: 81 Year
  Sex: Male
  Weight: 64.8 kg

DRUGS (6)
  1. IRINOTECAN HYDROCHLORIDE [Suspect]
     Active Substance: IRINOTECAN HYDROCHLORIDE
     Indication: Colorectal cancer metastatic
     Dosage: 1 UNK, EVERY 3 WEEKS
     Route: 042
     Dates: start: 20171025, end: 20180321
  2. IRINOTECAN HYDROCHLORIDE [Suspect]
     Active Substance: IRINOTECAN HYDROCHLORIDE
     Dosage: 1 UNK, EVERY 3 WEEKS
     Route: 042
     Dates: start: 20180411
  3. BEVACIZUMAB [Suspect]
     Active Substance: BEVACIZUMAB
     Indication: Colorectal cancer metastatic
     Dosage: 1 UNK, EVERY 3 WEEKS
     Route: 042
     Dates: start: 20171025
  4. ASPIRIN [Concomitant]
     Active Substance: ASPIRIN
     Indication: Prophylaxis
  5. LEUCOVORIN [Concomitant]
     Active Substance: LEUCOVORIN\LEUCOVORIN CALCIUM
     Indication: Colorectal cancer metastatic
     Dosage: UNK
     Route: 042
     Dates: start: 20171025, end: 20180321
  6. FLUOROURACIL [Concomitant]
     Active Substance: FLUOROURACIL
     Indication: Colorectal cancer metastatic
     Dosage: UNK
     Route: 042
     Dates: start: 20171025, end: 20180321

REACTIONS (7)
  - Cardiogenic shock [Fatal]
  - Pneumonia [Fatal]
  - Acute kidney injury [Fatal]
  - Hypokalaemia [Not Recovered/Not Resolved]
  - Pyrexia [Recovered/Resolved]
  - Cough [Recovered/Resolved]
  - Dyspnoea [Not Recovered/Not Resolved]

NARRATIVE: CASE EVENT DATE: 20180226
